FAERS Safety Report 22300503 (Version 2)
Quarter: 2023Q2

REPORT INFORMATION
  Report Type: Spontaneous
  Country: US (occurrence: US)
  Receive Date: 20230509
  Receipt Date: 20230510
  Transmission Date: 20230721
  Serious: No
  Sender: FDA-Public Use
  Company Number: US-JNJFOC-20230508889

PATIENT

DRUGS (4)
  1. TOPIRAMATE [Suspect]
     Active Substance: TOPIRAMATE
     Indication: Epilepsy
     Route: 048
     Dates: start: 2018, end: 2019
  2. TOPIRAMATE [Suspect]
     Active Substance: TOPIRAMATE
     Route: 048
     Dates: end: 2019
  3. FYCOMPA [Suspect]
     Active Substance: PERAMPANEL
     Indication: Epilepsy
     Route: 065
     Dates: start: 2018
  4. FYCOMPA [Suspect]
     Active Substance: PERAMPANEL
     Route: 065
     Dates: end: 2019

REACTIONS (3)
  - Psychogenic seizure [Unknown]
  - Paraesthesia [Unknown]
  - Cognitive disorder [Unknown]
